FAERS Safety Report 4393448-5 (Version None)
Quarter: 2004Q3

REPORT INFORMATION
  Report Type: 
  Country: None (occurrence: None)
  Receive Date: 20040709
  Receipt Date: 20040630
  Transmission Date: 20050211
  Serious: Yes (Life-Threatening)
  Sender: FDA-Public Use
  Company Number: PHHO2004AR09277

PATIENT
  Age: 68 Year
  Sex: Female
  Weight: 58 kg

DRUGS (5)
  1. NEORAL [Suspect]
     Indication: LIVER TRANSPLANT
     Dosage: 50 MG, Q12H
     Route: 048
     Dates: start: 19961102
  2. NEORAL [Suspect]
     Dosage: LOW DOSE
     Route: 048
     Dates: end: 20040504
  3. PREDNISONE [Concomitant]
     Indication: LIVER TRANSPLANT
     Dosage: 4 MG / DAY
     Route: 048
     Dates: start: 19961102
  4. AMLODIPIN [Concomitant]
  5. NPH INSULIN [Concomitant]

REACTIONS (7)
  - BLOOD CREATININE INCREASED [None]
  - DIABETES MELLITUS INADEQUATE CONTROL [None]
  - HYPERGLYCAEMIA [None]
  - PYREXIA [None]
  - RENAL FAILURE ACUTE [None]
  - URINARY TRACT DISORDER [None]
  - URINARY TRACT INFECTION [None]
